FAERS Safety Report 18499351 (Version 2)
Quarter: 2021Q1

REPORT INFORMATION
  Report Type: Spontaneous
  Country: US (occurrence: US)
  Receive Date: 20201112
  Receipt Date: 20210201
  Transmission Date: 20210419
  Serious: Yes (Other)
  Sender: FDA-Public Use
  Company Number: US-MIKART, LLC-2095891

PATIENT
  Age: 44 Year
  Sex: Male
  Weight: 90.91 kg

DRUGS (14)
  1. MSIR [Concomitant]
     Active Substance: MORPHINE SULFATE
  2. DHC PLUS [Concomitant]
     Active Substance: ACETAMINOPHEN\CAFFEINE\DIHYDROCODEINE BITARTRATE
  3. BYSTOLIC [Concomitant]
     Active Substance: NEBIVOLOL HYDROCHLORIDE
  4. PALLADONE [Concomitant]
     Active Substance: HYDROMORPHONE HYDROCHLORIDE
  5. TRAMADOL ER [Concomitant]
     Active Substance: TRAMADOL HYDROCHLORIDE
  6. HYDROCODONE BITARTRATE AND ACETAMINOPHEN [Suspect]
     Active Substance: ACETAMINOPHEN\HYDROCODONE BITARTRATE
     Route: 048
     Dates: start: 2016, end: 2017
  7. HYSINGLA ER [Concomitant]
     Active Substance: HYDROCODONE BITARTRATE
  8. HYDROMORPHONE ORAL SOLUTION [Concomitant]
     Active Substance: HYDROMORPHONE
  9. STELARA [Concomitant]
     Active Substance: USTEKINUMAB
  10. AMBIEN [Concomitant]
     Active Substance: ZOLPIDEM TARTRATE
  11. OXYCODONE. [Concomitant]
     Active Substance: OXYCODONE HYDROCHLORIDE
  12. HYDROCODONE BITARTRATE AND ACETAMINOPHEN [Concomitant]
     Active Substance: ACETAMINOPHEN\HYDROCODONE BITARTRATE
  13. NORCO [Concomitant]
     Active Substance: ACETAMINOPHEN\HYDROCODONE BITARTRATE
  14. OXYFAST [Concomitant]
     Active Substance: OXYCODONE

REACTIONS (3)
  - Withdrawal syndrome [Recovered/Resolved]
  - Dependence [Recovered/Resolved]
  - Substance use disorder [Unknown]

NARRATIVE: CASE EVENT DATE: 2016
